FAERS Safety Report 15811873 (Version 1)
Quarter: 2019Q1

REPORT INFORMATION
  Report Type: Spontaneous
  Country: DE (occurrence: DE)
  Receive Date: 20190111
  Receipt Date: 20190111
  Transmission Date: 20190417
  Serious: Yes (Other)
  Sender: FDA-Public Use
  Company Number: DE-TEVA-2019-DE-995753

PATIENT
  Sex: Female

DRUGS (1)
  1. TIZANIDIN 4 MG [Suspect]
     Active Substance: TIZANIDINE
     Route: 048

REACTIONS (4)
  - Sudden onset of sleep [Unknown]
  - Speech disorder [Unknown]
  - Asthenopia [Unknown]
  - Presyncope [Unknown]
